FAERS Safety Report 14235689 (Version 3)
Quarter: 2017Q4

REPORT INFORMATION
  Report Type: Spontaneous
  Country: US (occurrence: US)
  Receive Date: 20171129
  Receipt Date: 20171229
  Transmission Date: 20180321
  Serious: No
  Sender: FDA-Public Use
  Company Number: PHEH2017US037634

PATIENT
  Sex: Male

DRUGS (2)
  1. TRIAMCINOLONE ACETONIDE. [Suspect]
     Active Substance: TRIAMCINOLONE ACETONIDE
     Indication: ECZEMA
  2. TRIAMCINOLONE ACETONIDE. [Suspect]
     Active Substance: TRIAMCINOLONE ACETONIDE
     Indication: INFECTION
     Dosage: 1 DF, APPLY BID FOR 14 DAYS AND QD FOR 14 DAYS AND THEN PRN FLARES WITH MOISTURIZER OVER TOP
     Route: 061
     Dates: start: 20170420, end: 20171019

REACTIONS (2)
  - Skin erosion [Unknown]
  - Laceration [Recovered/Resolved]
